FAERS Safety Report 20656949 (Version 1)
Quarter: 2022Q1

REPORT INFORMATION
  Report Type: Report from Study
  Country: JP (occurrence: JP)
  Receive Date: 20220331
  Receipt Date: 20220331
  Transmission Date: 20220423
  Serious: Yes (Life-Threatening, Hospitalization, Other)
  Sender: FDA-Public Use
  Company Number: JP-TAKEDA-2022TJP034205

PATIENT
  Age: 75 Year
  Sex: Female
  Weight: 41.1 kg

DRUGS (10)
  1. VONOPRAZAN FUMARATE [Suspect]
     Active Substance: VONOPRAZAN FUMARATE
     Indication: Gastrooesophageal reflux disease
     Dosage: 20 MILLIGRAM, QD
     Route: 065
     Dates: start: 20181227
  2. VEDOLIZUMAB [Suspect]
     Active Substance: VEDOLIZUMAB
     Indication: Colitis ulcerative
     Dosage: UNK
     Route: 065
  3. ASACOL [Concomitant]
     Active Substance: MESALAMINE
     Indication: Colitis ulcerative
     Dosage: 1600 MILLIGRAM, BID
     Route: 065
     Dates: start: 20100511
  4. NITROFURANTOIN [Concomitant]
     Active Substance: NITROFURANTOIN
     Indication: Gastric ulcer
     Dosage: 75 MILLIGRAM, BID
     Route: 065
     Dates: start: 20101105
  5. BIO-THREE [Concomitant]
     Active Substance: HERBALS
     Indication: Colitis ulcerative
     Dosage: 3 DOSAGE FORM, BID
     Route: 065
     Dates: start: 20170317
  6. REFLEX [Concomitant]
     Active Substance: MIRTAZAPINE
     Indication: Persistent depressive disorder
     Dosage: 7.5 MILLIGRAM, QD
     Route: 065
     Dates: start: 20171003
  7. DEXTROMETHORPHAN HYDROBROMIDE [Concomitant]
     Active Substance: DEXTROMETHORPHAN HYDROBROMIDE
     Indication: Cough
     Dosage: 15 MILLIGRAM, TID
     Route: 065
     Dates: start: 20200915, end: 20201004
  8. PREDONINE [Concomitant]
     Active Substance: PREDNISOLONE
     Indication: Colitis ulcerative
     Dosage: 30 MILLIGRAM, QD
     Route: 065
     Dates: start: 20200919, end: 20200924
  9. SULFAMETHOXAZOLE\TRIMETHOPRIM [Concomitant]
     Active Substance: SULFAMETHOXAZOLE\TRIMETHOPRIM
     Indication: Infection prophylaxis
     Dosage: 1 DOSAGE FORM, QD
     Route: 065
     Dates: start: 20200916, end: 20201006
  10. CEFTRIAXONE SODIUM [Concomitant]
     Active Substance: CEFTRIAXONE SODIUM
     Indication: Post procedural infection
     Dosage: 2 GRAM
     Route: 065
     Dates: start: 20201015, end: 20201023

REACTIONS (2)
  - Colon cancer [Recovered/Resolved with Sequelae]
  - Portal vein thrombosis [Recovered/Resolved]

NARRATIVE: CASE EVENT DATE: 20200924
